FAERS Safety Report 12397788 (Version 1)
Quarter: 2016Q2

REPORT INFORMATION
  Report Type: Spontaneous
  Country: US (occurrence: US)
  Receive Date: 20160524
  Receipt Date: 20160524
  Transmission Date: 20160815
  Serious: No
  Sender: FDA-Public Use
  Company Number: US-ASTRAZENECA-2016SE51774

PATIENT
  Sex: Male

DRUGS (1)
  1. BRILINTA [Suspect]
     Active Substance: TICAGRELOR
     Route: 048

REACTIONS (8)
  - Drug dose omission [Unknown]
  - Heart rate irregular [Unknown]
  - Faeces discoloured [Unknown]
  - Palpitations [Unknown]
  - Abdominal pain upper [Unknown]
  - Ear discomfort [Unknown]
  - Dizziness [Unknown]
  - Insomnia [Unknown]
